FAERS Safety Report 4591450-1 (Version None)
Quarter: 2005Q1

REPORT INFORMATION
  Report Type: 
  Country: None (occurrence: None)
  Receive Date: 20050225
  Receipt Date: 20050216
  Transmission Date: 20050727
  Serious: Yes (Other)
  Sender: FDA-Public Use
  Company Number: US-ABBOTT-05P-163-0290932-00

PATIENT
  Sex: Female
  Weight: 102 kg

DRUGS (22)
  1. DILAUDID [Suspect]
     Indication: BACK PAIN
     Dates: start: 20040101
  2. ACETAMINOPHEN [Concomitant]
     Indication: BACK PAIN
  3. SERETIDE MITE [Concomitant]
     Indication: DRUG USE FOR UNKNOWN INDICATION
     Dosage: 250 - 50 MG
     Route: 055
  4. ACETYLSALICYLIC ACID [Concomitant]
     Indication: CARDIAC DISORDER
  5. BEXTRA [Concomitant]
     Indication: MEDICAL DIET
  6. CALCIUM GLUCONATE [Concomitant]
     Indication: MEDICAL DIET
  7. ERGOCALCIFEROL [Concomitant]
     Indication: MEDICAL DIET
  8. CENTRUM [Concomitant]
     Indication: MEDICAL DIET
  9. MULTIVITAMIN [Concomitant]
     Indication: MEDICAL DIET
  10. FERROUS SULFATE TAB [Concomitant]
     Indication: MEDICAL DIET
  11. FUROSEMIDE [Concomitant]
     Indication: DIURETIC THERAPY
     Dosage: 10 - 40 MG QD
  12. GLIPIZIDE [Concomitant]
     Indication: DIABETES MELLITUS
  13. HYDROCHLOROTHIAZIDE [Concomitant]
     Indication: FLUID RETENTION
  14. IMIPRAMINE HCL [Concomitant]
     Indication: DEPRESSION
  15. MECLIZINE HCL [Concomitant]
     Indication: DIZZINESS
  16. LOMOTIL [Concomitant]
     Indication: DIARRHOEA
  17. GABAPENTIN [Concomitant]
     Indication: ANTICOAGULANT THERAPY
  18. PRAVASTATIN SODIUM [Concomitant]
     Indication: HYPERLIPIDAEMIA
  19. ESTROGENS CONJUGATED [Concomitant]
     Indication: HORMONE REPLACEMENT THERAPY
  20. PANTOPRAZOLE [Concomitant]
     Indication: ULCER
  21. VERAPAMIL [Concomitant]
     Indication: CARDIAC DISORDER
  22. CETIRIZINE HCL [Concomitant]
     Indication: HYPERSENSITIVITY

REACTIONS (3)
  - CARDIO-RESPIRATORY ARREST [None]
  - HYPERSENSITIVITY [None]
  - HYPOTENSION [None]
